FAERS Safety Report 9159808 (Version 1)
Quarter: 2013Q1

REPORT INFORMATION
  Report Type: Spontaneous
  Country: FR (occurrence: None)
  Receive Date: 20130219
  Receipt Date: 20130219
  Transmission Date: 20140127
  Serious: Yes (Hospitalization)
  Sender: FDA-Public Use
  Company Number: DKLU1088879

PATIENT
  Age: 59 Year
  Sex: Male

DRUGS (5)
  1. ONFI [Suspect]
     Route: 048
     Dates: start: 20130107
  2. ENALAPRIL MALEATE (ENALAPRIL MALEATE) [Suspect]
     Route: 048
     Dates: start: 2009, end: 20121227
  3. LYRICA [Suspect]
     Dates: start: 2008
  4. IXPRIM [Suspect]
     Route: 048
     Dates: end: 20130118
  5. ATENOLOL (ATENOLOL) [Suspect]
     Route: 048
     Dates: end: 20130118

REACTIONS (2)
  - Liver injury [None]
  - Cholelithiasis [None]
